FAERS Safety Report 6649903-8 (Version None)
Quarter: 2010Q1

REPORT INFORMATION
  Report Type: 
  Country: None (occurrence: None)
  Receive Date: 20100325
  Receipt Date: 20100316
  Transmission Date: 20100710
  Serious: No
  Sender: FDA-Public Use
  Company Number: US-BIOGENIDEC-2010BI009269

PATIENT
  Sex: Male

DRUGS (2)
  1. TYSABRI [Suspect]
     Indication: MULTIPLE SCLEROSIS
     Route: 042
  2. TYSABRI [Suspect]
     Route: 042

REACTIONS (5)
  - FATIGUE [None]
  - HOT FLUSH [None]
  - MUSCULAR WEAKNESS [None]
  - NERVOUSNESS [None]
  - SENSATION OF HEAVINESS [None]
